FAERS Safety Report 23194098 (Version 3)
Quarter: 2023Q4

REPORT INFORMATION
  Report Type: Spontaneous
  Country: PL (occurrence: PL)
  Receive Date: 20231117
  Receipt Date: 20231222
  Transmission Date: 20240109
  Serious: Yes (Hospitalization, Other)
  Sender: FDA-Public Use
  Company Number: PL-Gedeon Richter Plc.-2023_GR_010998

PATIENT
  Age: 32 Year
  Sex: Female

DRUGS (1)
  1. LEVONORGESTREL [Suspect]
     Active Substance: LEVONORGESTREL
     Indication: Contraception
     Dosage: TIME INTERVAL: AS NECESSARY: 20?G/24H, 52 MG SINGLE, AT AN INITIAL RELEASE RATE OF 20 MICROGRAMS ...
     Route: 015
     Dates: start: 2019, end: 202310

REACTIONS (4)
  - Ectopic pregnancy with contraceptive device [Recovered/Resolved]
  - Drug ineffective [Recovered/Resolved]
  - Salpingectomy [Unknown]
  - Maternal exposure during pregnancy [Unknown]

NARRATIVE: CASE EVENT DATE: 20231001
